FAERS Safety Report 5825845-2 (Version None)
Quarter: 2008Q3

REPORT INFORMATION
  Report Type: 
  Country: None (occurrence: None)
  Receive Date: 20080729
  Receipt Date: 20080718
  Transmission Date: 20090109
  Serious: Yes (Hospitalization)
  Sender: FDA-Public Use
  Company Number: JP-WYE-H04149808

PATIENT
  Age: 84 Year
  Sex: Male

DRUGS (4)
  1. TAZOCIN [Suspect]
     Indication: SEPSIS
     Route: 041
     Dates: start: 20080505, end: 20080512
  2. LASIX [Concomitant]
     Indication: CARDIAC FAILURE CONGESTIVE
     Route: 042
     Dates: start: 20080301, end: 20080512
  3. PENICILLIN [Concomitant]
     Dosage: UNKNOWN
     Route: 065
  4. HABEKACIN [Suspect]
     Indication: SEPSIS
     Route: 041
     Dates: start: 20080503, end: 20080512

REACTIONS (5)
  - BLOOD CHLORIDE DECREASED [None]
  - BLOOD POTASSIUM DECREASED [None]
  - BLOOD SODIUM DECREASED [None]
  - HAEMODIALYSIS [None]
  - RENAL FAILURE ACUTE [None]
